FAERS Safety Report 22022461 (Version 1)
Quarter: 2023Q1

REPORT INFORMATION
  Report Type: Spontaneous
  Country: CN (occurrence: CN)
  Receive Date: 20230222
  Receipt Date: 20230222
  Transmission Date: 20230418
  Serious: Yes (Disabling, Other)
  Sender: FDA-Public Use
  Company Number: CN-PFIZER INC-PV202300032665

PATIENT
  Age: 97 Year
  Sex: Female
  Weight: 62 kg

DRUGS (2)
  1. NIRMATRELVIR\RITONAVIR [Suspect]
     Active Substance: NIRMATRELVIR\RITONAVIR
     Indication: Pneumonia
     Dosage: 400 MG, 2X/DAY
     Route: 048
     Dates: start: 20230103, end: 20230107
  2. RO-0622 [Suspect]
     Active Substance: RO-0622
     Indication: Pneumonia
     Dosage: 5 MG, 1X/DAY
     Route: 048
     Dates: start: 20230102, end: 20230103

REACTIONS (4)
  - Blood creatinine increased [Recovering/Resolving]
  - Creatinine renal clearance decreased [Recovering/Resolving]
  - Renal impairment [Recovering/Resolving]
  - Off label use [Unknown]

NARRATIVE: CASE EVENT DATE: 20230103
